FAERS Safety Report 6836417-5 (Version None)
Quarter: 2010Q3

REPORT INFORMATION
  Report Type: 
  Country: None (occurrence: None)
  Receive Date: 20100713
  Receipt Date: 20100701
  Transmission Date: 20110219
  Serious: Yes (Life-Threatening, Hospitalization)
  Sender: FDA-Public Use
  Company Number: CH-PFIZER INC-2010082182

PATIENT
  Age: 80 Year
  Sex: Male

DRUGS (6)
  1. NEURONTIN [Suspect]
     Indication: ENCEPHALITIS
     Dosage: 600 MG, 3X/DAY
     Route: 048
     Dates: start: 20100511, end: 20100601
  2. NEURONTIN [Suspect]
     Indication: HERPES ZOSTER OPHTHALMIC
  3. TRAMAL [Concomitant]
     Indication: ENCEPHALITIS
     Dosage: UNK
  4. TRAMAL [Concomitant]
     Indication: HERPES ZOSTER OPHTHALMIC
  5. DEXAMETHASONE [Concomitant]
     Indication: ENCEPHALITIS
     Dosage: UNK
  6. DEXAMETHASONE [Concomitant]
     Indication: HERPES ZOSTER OPHTHALMIC

REACTIONS (3)
  - CONFUSIONAL STATE [None]
  - HYPONATRAEMIA [None]
  - INAPPROPRIATE ANTIDIURETIC HORMONE SECRETION [None]
